FAERS Safety Report 4693818-1 (Version None)
Quarter: 2005Q2

REPORT INFORMATION
  Report Type: 
  Country: None (occurrence: None)
  Receive Date: 20050616
  Receipt Date: 20050603
  Transmission Date: 20051028
  Serious: Yes (Life-Threatening, Other)
  Sender: FDA-Public Use
  Company Number: A-CH2005-08876

PATIENT
  Age: 66 Year
  Sex: Male

DRUGS (8)
  1. TRACLEER [Suspect]
     Indication: PULMONARY VENO-OCCLUSIVE DISEASE
     Dosage: SEE IMAGE
     Route: 048
     Dates: start: 20050112, end: 20050126
  2. KARDEGIC (ACETYLSALICYLATE LYSINE) [Concomitant]
  3. COUMADIN [Concomitant]
  4. TILDIEM - SLOW RELEASE (DILTIAZEM HYDROCHLORIDE) [Concomitant]
  5. LASIX [Concomitant]
  6. ZOCOR [Concomitant]
  7. SEROPRAM (CITOLOPRAM HYDROBROMIDE) [Concomitant]
  8. ALDACTONE [Concomitant]

REACTIONS (4)
  - HEADACHE [None]
  - OEDEMA PERIPHERAL [None]
  - PULMONARY OEDEMA [None]
  - TACHYCARDIA [None]
